FAERS Safety Report 7594518-0 (Version None)
Quarter: 2011Q2

REPORT INFORMATION
  Report Type: 
  Country: None (occurrence: None)
  Receive Date: 20110628
  Receipt Date: 20110614
  Transmission Date: 20111010
  Serious: Yes (Hospitalization, Disabling, Other)
  Sender: FDA-Public Use
  Company Number: 2010AL002995

PATIENT
  Sex: Female
  Weight: 53.5244 kg

DRUGS (21)
  1. METOCLOPRAMIDE [Suspect]
     Indication: IMPAIRED GASTRIC EMPTYING
     Dosage: 20 MG;QID;PO
     Route: 048
     Dates: start: 19980101, end: 20090401
  2. LANTUS [Concomitant]
  3. SELEGILINE [Concomitant]
  4. AMYTRIPTILINE [Concomitant]
  5. FOSAMAX [Concomitant]
  6. DARVOCET [Concomitant]
  7. FLEXERIL [Concomitant]
  8. SYNTHROID [Concomitant]
  9. RESTORIL [Concomitant]
  10. NSAIDS [Concomitant]
  11. ELAVIL [Concomitant]
  12. OMEPRAZOLE [Concomitant]
  13. HUMALOG [Concomitant]
  14. PROMETHAZINE [Concomitant]
  15. PROPULSID [Concomitant]
  16. LEVOTHYROXINE [Concomitant]
  17. DOMEPERIDONE [Concomitant]
  18. PREMARIN [Concomitant]
  19. LISINOPRIL [Concomitant]
  20. CALCIUM CARBONATE [Concomitant]
  21. LOVASTATIN [Concomitant]

REACTIONS (39)
  - EAR PAIN [None]
  - LYMPHADENOPATHY [None]
  - CEREBRAL ISCHAEMIA [None]
  - RENAL DISORDER [None]
  - INJURY [None]
  - VERTIGO [None]
  - EMPHYSEMA [None]
  - DECREASED APPETITE [None]
  - CARPAL TUNNEL SYNDROME [None]
  - DIABETIC KETOACIDOSIS [None]
  - DYSPNOEA [None]
  - NAUSEA [None]
  - EXTRAPYRAMIDAL DISORDER [None]
  - DYSTONIA [None]
  - MENTAL STATUS CHANGES [None]
  - COUGH [None]
  - PNEUMOTHORAX [None]
  - CEREBRAL ATROPHY [None]
  - OSTEOPOROSIS [None]
  - UPPER LIMB FRACTURE [None]
  - HYPERCHOLESTEROLAEMIA [None]
  - URINARY TRACT INFECTION [None]
  - VOMITING [None]
  - CONSTIPATION [None]
  - SPINAL OSTEOARTHRITIS [None]
  - PERNICIOUS ANAEMIA [None]
  - COLONIC POLYP [None]
  - EMOTIONAL DISORDER [None]
  - HYPOAESTHESIA [None]
  - DIABETES MELLITUS INADEQUATE CONTROL [None]
  - CEREBRAL ARTERY OCCLUSION [None]
  - CLUBBING [None]
  - HYPERLIPIDAEMIA [None]
  - TARDIVE DYSKINESIA [None]
  - DIZZINESS [None]
  - GAIT DISTURBANCE [None]
  - WHEEZING [None]
  - COLLATERAL CIRCULATION [None]
  - DEHYDRATION [None]
